FAERS Safety Report 7238938 (Version 1)
Quarter: 2020Q3

REPORT INFORMATION
  Report Type: Report from Study
  Country: US (occurrence: US)
  Receive Date: 20100107
  Receipt Date: 20100107
  Transmission Date: 20201105
  Serious: Yes (Other)
  Sender: FDA-Public Use
  Company Number: US-ROCHE-677400

PATIENT
  Age: 74 Year
  Sex: Female
  Weight: 86.2 kg

DRUGS (2)
  1. IBANDRONIC ACID. [Suspect]
     Active Substance: IBANDRONIC ACID
     Indication: OSTEOPOROSIS
     Dosage: DURATION OF TREATMENT 1 AND A HALF YEARS
     Route: 048
     Dates: start: 2008
  2. INSULIN NOS [Concomitant]
     Active Substance: INSULIN NOS

REACTIONS (2)
  - Gastric disorder [Unknown]
  - Abdominal pain upper [Recovering/Resolving]

NARRATIVE: CASE EVENT DATE: 20090801
